FAERS Safety Report 24197511 (Version 1)
Quarter: 2024Q3

REPORT INFORMATION
  Report Type: Spontaneous
  Country: GB (occurrence: GB)
  Receive Date: 20240811
  Receipt Date: 20240811
  Transmission Date: 20241016
  Serious: Yes (Other)
  Sender: TEVA
  Company Number: GB-MHRA-TPP19522905C7216619YC1722440444927

PATIENT
  Age: 79 Year
  Sex: Female
  Weight: 96 kg

DRUGS (11)
  1. AMLODIPINE [Suspect]
     Active Substance: AMLODIPINE BESYLATE
     Indication: Ill-defined disorder
     Route: 048
     Dates: start: 20230424, end: 20240730
  2. VAGIFEM [Concomitant]
     Active Substance: ESTRADIOL
     Indication: Ill-defined disorder
     Dosage: ONE TO BE INSERTED TWICE WEEKLY AS PER SPECIALI...
     Route: 065
     Dates: start: 20240726
  3. CEPHALEXIN [Concomitant]
     Active Substance: CEPHALEXIN
     Indication: Ill-defined disorder
     Dosage: ONE TO BE TAKEN DAILY ROTATING MONTH 3
     Route: 065
     Dates: start: 20230524
  4. DICLOFENAC DIETHYLAMINE [Concomitant]
     Active Substance: DICLOFENAC DIETHYLAMINE
     Indication: Ill-defined disorder
     Dosage: APPLY 3 - 4 TIMES A DAY
     Route: 065
     Dates: start: 20240522, end: 20240605
  5. AMOXICILLIN\CLAVULANIC ACID [Concomitant]
     Active Substance: AMOXICILLIN\CLAVULANIC ACID
     Indication: Ill-defined disorder
     Dosage: ONE TO BE TAKEN DAILY ROTATING MONTH 1
     Route: 065
     Dates: start: 20230524
  6. NAPROXEN [Concomitant]
     Active Substance: NAPROXEN
     Indication: Ill-defined disorder
     Dosage: ONE TABLET EVERY 6-8 HOURS AS REQUIRED
     Route: 065
     Dates: start: 20240521, end: 20240522
  7. ESTRADIOL [Concomitant]
     Active Substance: ESTRADIOL
     Indication: Ill-defined disorder
     Dosage: ONE TWICE A WEEK AS DIRECTED BY SPECIALIST
     Route: 065
     Dates: start: 20230524, end: 20240726
  8. CANDESARTAN [Concomitant]
     Active Substance: CANDESARTAN
     Indication: Ill-defined disorder
     Route: 065
     Dates: start: 20230921
  9. CITALOPRAM [Concomitant]
     Active Substance: CITALOPRAM\CITALOPRAM HYDROBROMIDE
     Indication: Ill-defined disorder
     Dosage: START WITH ONE TABLET DAILY FOR 1WEEK AND IF TO...
     Route: 065
     Dates: start: 20240228
  10. NITROFURANTOIN [Concomitant]
     Active Substance: NITROFURANTOIN
     Indication: Ill-defined disorder
     Dosage: ONE TO BE TAKEN DAILY ROTATING MONTH 2
     Route: 065
     Dates: start: 20230524
  11. OMEPRAZOLE [Concomitant]
     Active Substance: OMEPRAZOLE
     Indication: Ill-defined disorder
     Route: 065
     Dates: start: 20240521, end: 20240522

REACTIONS (1)
  - Joint swelling [Recovering/Resolving]

NARRATIVE: CASE EVENT DATE: 20230522
